FAERS Safety Report 9256035 (Version 2)
Quarter: 2013Q2

REPORT INFORMATION
  Report Type: Spontaneous
  Country: CA (occurrence: CA)
  Receive Date: 20130425
  Receipt Date: 20130501
  Transmission Date: 20140414
  Serious: Yes (Death, Hospitalization)
  Sender: FDA-Public Use
  Company Number: CA-FRI-1000044564

PATIENT
  Age: 76 Year
  Sex: Female

DRUGS (2)
  1. TEFLARO [Suspect]
     Indication: STAPHYLOCOCCAL INFECTION
     Dosage: 600 MG
     Dates: start: 20130330, end: 20130401
  2. TEFLARO [Suspect]
     Dosage: 1200 MG
     Dates: start: 20130402

REACTIONS (2)
  - Renal failure [Fatal]
  - Extradural abscess [Fatal]
